FAERS Safety Report 7128558-2 (Version None)
Quarter: 2010Q4

REPORT INFORMATION
  Report Type: 
  Country: None (occurrence: None)
  Receive Date: 20101130
  Receipt Date: 20101119
  Transmission Date: 20110411
  Serious: Yes (Other)
  Sender: FDA-Public Use
  Company Number: FR-SANOFI-AVENTIS-2010SA070544

PATIENT
  Sex: Male

DRUGS (6)
  1. MULTAQ [Suspect]
     Indication: ATRIAL FIBRILLATION
     Route: 048
     Dates: start: 20101112
  2. PREVISCAN [Suspect]
     Indication: ATRIAL FIBRILLATION
     Route: 048
     Dates: end: 20101001
  3. PREVISCAN [Suspect]
     Route: 048
     Dates: start: 20100101, end: 20101117
  4. FLECAINIDE ACETATE [Concomitant]
     Route: 065
     Dates: start: 20101001
  5. DIGOXINE [Concomitant]
     Route: 065
     Dates: end: 20101117
  6. KARDEGIC [Concomitant]
     Route: 048

REACTIONS (1)
  - INTERNATIONAL NORMALISED RATIO INCREASED [None]
